FAERS Safety Report 13511897 (Version 1)
Quarter: 2017Q2

REPORT INFORMATION
  Report Type: Report from Study
  Country: BR (occurrence: BR)
  Receive Date: 20170504
  Receipt Date: 20170504
  Transmission Date: 20170830
  Serious: Yes (Hospitalization)
  Sender: FDA-Public Use
  Company Number: BR-JNJFOC-20170428245

PATIENT
  Sex: Female
  Weight: 68 kg

DRUGS (2)
  1. SIMPONI [Suspect]
     Active Substance: GOLIMUMAB
     Indication: RHEUMATOID ARTHRITIS
     Route: 058
     Dates: start: 20150924
  2. DIPYRONE [Concomitant]
     Active Substance: DIPYRONE
     Route: 065

REACTIONS (8)
  - Spinal disorder [Unknown]
  - Erythema [Unknown]
  - Diverticulitis [Unknown]
  - Arthropathy [Unknown]
  - Platelet count decreased [Unknown]
  - Alopecia [Unknown]
  - Peripheral swelling [Unknown]
  - Anaemia [Unknown]
